FAERS Safety Report 14895514 (Version 1)
Quarter: 2018Q2

REPORT INFORMATION
  Report Type: Spontaneous
  Country: US (occurrence: US)
  Receive Date: 20180515
  Receipt Date: 20180515
  Transmission Date: 20180711
  Serious: Yes (Hospitalization, Other)
  Sender: FDA-Public Use
  Company Number: US-BAYER-2018-089335

PATIENT
  Age: 66 Year
  Sex: Female

DRUGS (4)
  1. ACETYLSALICYLIC ACID({=100 MG) [Suspect]
     Active Substance: ASPIRIN
     Indication: PERICARDITIS
  2. INDOMETHACIN. [Concomitant]
     Active Substance: INDOMETHACIN
     Indication: PERICARDITIS
     Dosage: UNK
  3. ENOXAPARIN [Interacting]
     Active Substance: ENOXAPARIN
     Dosage: 100 MG, BID
     Route: 058
  4. COLCHICINE. [Concomitant]
     Active Substance: COLCHICINE
     Indication: PERICARDITIS

REACTIONS (3)
  - Drug administration error [None]
  - Pulmonary alveolar haemorrhage [None]
  - Labelled drug-drug interaction medication error [None]
